FAERS Safety Report 20916819 (Version 1)
Quarter: 2022Q2

REPORT INFORMATION
  Report Type: Spontaneous
  Country: US (occurrence: US)
  Receive Date: 20220605
  Receipt Date: 20220605
  Transmission Date: 20220721
  Serious: Yes (Hospitalization, Other)
  Sender: FDA-Public Use
  Company Number: US-PRINSTON PHARMACEUTICAL INC.-2022PRN00187

PATIENT
  Age: 69 Year
  Sex: Male

DRUGS (8)
  1. PHENTERMINE HYDROCHLORIDE [Suspect]
     Active Substance: PHENTERMINE HYDROCHLORIDE
     Indication: Weight control
     Route: 048
  2. PHENTERMINE HYDROCHLORIDE [Suspect]
     Active Substance: PHENTERMINE HYDROCHLORIDE
     Dosage: 750 MG
     Route: 048
  3. QUETIAPINE [Concomitant]
     Active Substance: QUETIAPINE
     Route: 065
  4. ASPIRIN [Concomitant]
     Active Substance: ASPIRIN
     Route: 065
  5. LISINOPRIL [Concomitant]
     Active Substance: LISINOPRIL
     Route: 065
  6. UNSPECIFIED AMPHETAMINES [Concomitant]
     Route: 065
  7. UNSPECIFIED TRICYCLICS [Concomitant]
     Route: 065
  8. BUPROPION [Concomitant]
     Active Substance: BUPROPION
     Route: 065

REACTIONS (12)
  - Multiple organ dysfunction syndrome [Recovered/Resolved]
  - Rhabdomyolysis [Recovered/Resolved]
  - Supraventricular tachycardia [Recovered/Resolved]
  - Intentional overdose [Recovered/Resolved]
  - Muscle twitching [Recovered/Resolved]
  - Stress cardiomyopathy [Recovered/Resolved]
  - Atrial fibrillation [Recovered/Resolved]
  - Bundle branch block right [Recovered/Resolved]
  - Metabolic acidosis [Recovered/Resolved]
  - Agitation [Recovered/Resolved]
  - Hyperkalaemia [Recovered/Resolved]
  - Atelectasis [Recovered/Resolved]
